FAERS Safety Report 9438347 (Version 1)
Quarter: 2013Q3

REPORT INFORMATION
  Report Type: Spontaneous
  Country: US (occurrence: None)
  Receive Date: 20130802
  Receipt Date: 20130802
  Transmission Date: 20140515
  Serious: Yes (Other)
  Sender: FDA-Public Use
  Company Number: None

PATIENT
  Sex: Female

DRUGS (1)
  1. LEVOFLOXACIN 750MG CVS. MFR: DR. REDDY^S LAB [Suspect]
     Dosage: ONE  DAILY  PO
     Route: 048
     Dates: start: 20130616, end: 20130621

REACTIONS (7)
  - Myalgia [None]
  - Fatigue [None]
  - Muscular weakness [None]
  - Arthralgia [None]
  - Pain in extremity [None]
  - Arthralgia [None]
  - Tendon disorder [None]
